FAERS Safety Report 20664904 (Version 1)
Quarter: 2022Q2

REPORT INFORMATION
  Report Type: Spontaneous
  Country: HR (occurrence: HR)
  Receive Date: 20220401
  Receipt Date: 20220401
  Transmission Date: 20220720
  Serious: Yes (Other)
  Sender: FDA-Public Use
  Company Number: HR-MALLINCKRODT-T202201383

PATIENT
  Age: 30 Year
  Sex: Male

DRUGS (5)
  1. UVADEX [Suspect]
     Active Substance: METHOXSALEN
     Indication: Acute graft versus host disease in skin
     Dosage: UNK, ONE CYCLE (2 CONSECUTIVE) WEEKLY DURING MONTH 1, EXTRACORPOREAL
     Route: 050
  2. UVADEX [Suspect]
     Active Substance: METHOXSALEN
     Dosage: ONE CYCLE EVERY 2 WEEKS, EXTRACORPOREAL
     Route: 050
  3. UVADEX [Suspect]
     Active Substance: METHOXSALEN
     Dosage: ONCE MONTHLY, EXTRACORPOREAL
     Route: 050
  4. IMATINIB [Concomitant]
     Active Substance: IMATINIB
     Indication: Acute graft versus host disease in skin
     Dosage: UNK
     Route: 065
  5. CYCLOSPORINE [Concomitant]
     Active Substance: CYCLOSPORINE
     Indication: Product used for unknown indication
     Dosage: UNK
     Route: 065

REACTIONS (3)
  - Graft versus host disease in eye [Unknown]
  - Condition aggravated [Unknown]
  - Drug effective for unapproved indication [Unknown]
